FAERS Safety Report 6455950-1 (Version None)
Quarter: 2009Q4

REPORT INFORMATION
  Report Type: 
  Country: None (occurrence: None)
  Receive Date: 20091119
  Receipt Date: 20091106
  Transmission Date: 20100525
  Serious: Yes (Death)
  Sender: FDA-Public Use
  Company Number: 2009AL007233

PATIENT
  Age: 67 Year
  Sex: Male

DRUGS (7)
  1. OXYCODONE HCL [Suspect]
  2. ZOPICLONE [Concomitant]
  3. NICOTINE [Concomitant]
  4. MORPHINE [Concomitant]
  5. PARACETAMOL [Concomitant]
  6. FLUOXETINE [Concomitant]
  7. QUININE [Concomitant]

REACTIONS (10)
  - ALCOHOL USE [None]
  - AORTIC ANEURYSM [None]
  - AORTIC ARTERIOSCLEROSIS [None]
  - ARTERIOSCLEROSIS CORONARY ARTERY [None]
  - CARDIOMEGALY [None]
  - COMPLETED SUICIDE [None]
  - CYANOSIS [None]
  - LUNG NEOPLASM [None]
  - MULTIPLE DRUG OVERDOSE INTENTIONAL [None]
  - PULMONARY CONGESTION [None]
